FAERS Safety Report 6517793-X (Version None)
Quarter: 2009Q4

REPORT INFORMATION
  Report Type: 
  Country: None (occurrence: None)
  Receive Date: 20091224
  Receipt Date: 20091216
  Transmission Date: 20100525
  Serious: Yes (Other)
  Sender: FDA-Public Use
  Company Number: JP-ELI_LILLY_AND_COMPANY-JP200912004477

PATIENT
  Sex: Male

DRUGS (2)
  1. HUMALOG MIX 50/50 [Suspect]
     Dosage: UNK, 3/D
     Route: 058
  2. HUMALOG MIX 50/50 [Suspect]
     Dosage: UNK, 2/D
     Route: 058

REACTIONS (2)
  - FEELING ABNORMAL [None]
  - LOSS OF CONSCIOUSNESS [None]
